FAERS Safety Report 13794974 (Version 1)
Quarter: 2017Q3

REPORT INFORMATION
  Report Type: Spontaneous
  Country: US (occurrence: US)
  Receive Date: 20170726
  Receipt Date: 20170726
  Transmission Date: 20171127
  Serious: Yes (Hospitalization, Other)
  Sender: FDA-Public Use
  Company Number: US-AMGEN-USASP2017110052

PATIENT
  Age: 78 Year
  Sex: Female

DRUGS (2)
  1. REPATHA [Suspect]
     Active Substance: EVOLOCUMAB
     Indication: PRODUCT USED FOR UNKNOWN INDICATION
     Dosage: UNK
     Route: 065
  2. NITRO [Concomitant]
     Active Substance: NITROGLYCERIN

REACTIONS (6)
  - Venous occlusion [Unknown]
  - Vein disorder [Unknown]
  - Chest discomfort [Unknown]
  - Inner ear disorder [Not Recovered/Not Resolved]
  - Paraesthesia [Unknown]
  - Nervousness [Unknown]

NARRATIVE: CASE EVENT DATE: 2017
